FAERS Safety Report 7818056-2 (Version None)
Quarter: 2011Q4

REPORT INFORMATION
  Report Type: 
  Country: None (occurrence: None)
  Receive Date: 20111017
  Receipt Date: 20111012
  Transmission Date: 20120403
  Serious: Yes (Other)
  Sender: FDA-Public Use
  Company Number: CO-PFIZER INC-2011183475

PATIENT
  Age: 29 Year
  Sex: Female

DRUGS (2)
  1. MYCOPHENOLATE MOFETIL [Concomitant]
  2. RAPAMUNE [Suspect]
     Indication: PROPHYLAXIS AGAINST TRANSPLANT REJECTION
     Dosage: 3 MG, 1X/DAY
     Route: 048
     Dates: start: 20110115

REACTIONS (1)
  - WEIGHT DECREASED [None]
